FAERS Safety Report 6693228-1 (Version None)
Quarter: 2010Q2

REPORT INFORMATION
  Report Type: 
  Country: None (occurrence: None)
  Receive Date: 20100421
  Receipt Date: 20100421
  Transmission Date: 20101027
  Serious: Yes (Other)
  Sender: FDA-Public Use
  Company Number: None

PATIENT
  Age: 67 Year
  Sex: Female
  Weight: 60.782 kg

DRUGS (3)
  1. ESTROGEN/TESTOSTERONE EST ESTROGENMTEST TAB AMN ISN'T SHOWN AMN -????? [Suspect]
     Indication: DYSPNOEA
     Dosage: NOT SHOWN -DARK GREEN TABLET- 1 DAILY PO
     Route: 048
     Dates: start: 20100217, end: 20100408
  2. ESTROGEN/TESTOSTERONE EST ESTROGENMTEST TAB AMN ISN'T SHOWN AMN -????? [Suspect]
     Indication: FATIGUE
     Dosage: NOT SHOWN -DARK GREEN TABLET- 1 DAILY PO
     Route: 048
     Dates: start: 20100217, end: 20100408
  3. ESTROGEN/TESTOSTERONE EST ESTROGENMTEST TAB AMN ISN'T SHOWN AMN -????? [Suspect]
     Indication: HORMONE REPLACEMENT THERAPY
     Dosage: NOT SHOWN -DARK GREEN TABLET- 1 DAILY PO
     Route: 048
     Dates: start: 20100217, end: 20100408

REACTIONS (1)
  - DRUG ERUPTION [None]
